FAERS Safety Report 5699343-3 (Version None)
Quarter: 2008Q2

REPORT INFORMATION
  Report Type: 
  Country: None (occurrence: None)
  Receive Date: 20080404
  Receipt Date: 20080327
  Transmission Date: 20081010
  Serious: Yes (Other)
  Sender: FDA-Public Use
  Company Number: 2008-02117

PATIENT
  Age: 12 Year
  Sex: Male

DRUGS (2)
  1. FIORICET [Suspect]
     Indication: DRUG USE FOR UNKNOWN INDICATION
     Dosage: ORAL
     Route: 048
  2. AMITRIPTYLINE HYDROCHLORIDE [Suspect]
     Indication: DRUG USE FOR UNKNOWN INDICATION
     Dosage: ORAL
     Route: 048

REACTIONS (9)
  - AGGRESSION [None]
  - AGITATION [None]
  - AMNESIA [None]
  - ANGER [None]
  - ENERGY INCREASED [None]
  - HALLUCINATION [None]
  - HOMICIDAL IDEATION [None]
  - HOSTILITY [None]
  - IMPULSIVE BEHAVIOUR [None]
